FAERS Safety Report 9525445 (Version 1)
Quarter: 2013Q3

REPORT INFORMATION
  Report Type: Spontaneous
  Country: US (occurrence: None)
  Receive Date: 20130913
  Receipt Date: 20130913
  Transmission Date: 20140515
  Serious: Yes (Hospitalization)
  Sender: FDA-Public Use
  Company Number: None

PATIENT
  Age: 63 Year
  Sex: Male
  Weight: 97 kg

DRUGS (14)
  1. DOCETAXEL [Suspect]
     Indication: OESOPHAGEAL CARCINOMA
  2. CISPLATIN [Suspect]
  3. ASPIRIN [Concomitant]
  4. BENZONATATE [Concomitant]
  5. DALTEPARIN [Concomitant]
  6. ERYTHROMYCIN [Concomitant]
  7. FINASTERIDE [Concomitant]
  8. LANSOPRAZOLE [Concomitant]
  9. LORAZEPAM [Concomitant]
  10. MVI PEDIATRIC [Concomitant]
  11. NYSTATIN PO [Concomitant]
  12. ONDANSETRON [Concomitant]
  13. OXYCODONE [Concomitant]
  14. SERTRALINE [Concomitant]

REACTIONS (5)
  - Urinary retention [None]
  - Diarrhoea [None]
  - Pancytopenia [None]
  - Constipation [None]
  - Neuropathy peripheral [None]
